FAERS Safety Report 24806405 (Version 3)
Quarter: 2025Q1

REPORT INFORMATION
  Report Type: Report from Study
  Country: US (occurrence: US)
  Receive Date: 20250103
  Receipt Date: 20250321
  Transmission Date: 20250409
  Serious: No
  Sender: SUNOVION
  Company Number: US-SMPA-2024SPA006380AA

PATIENT

DRUGS (3)
  1. ORGOVYX [Suspect]
     Active Substance: RELUGOLIX
     Indication: Prostate cancer
     Dosage: 360 MG, SINGLE
     Route: 048
     Dates: start: 20241120, end: 20241120
  2. ORGOVYX [Suspect]
     Active Substance: RELUGOLIX
     Dosage: 120 MG, QD
     Route: 048
     Dates: start: 20241121
  3. ZYTIGA [Suspect]
     Active Substance: ABIRATERONE ACETATE
     Route: 065

REACTIONS (17)
  - Post procedural haemorrhage [Unknown]
  - Post procedural contusion [Unknown]
  - Memory impairment [Unknown]
  - Breast enlargement [Unknown]
  - Urinary hesitation [Unknown]
  - Weight decreased [Unknown]
  - Pruritus [Unknown]
  - Pain [Unknown]
  - Prostatic specific antigen increased [Unknown]
  - Acne [Unknown]
  - Night sweats [Unknown]
  - Irritability [Unknown]
  - Depression [Unknown]
  - Hyperhidrosis [Unknown]
  - Fatigue [Unknown]
  - Hot flush [Unknown]
  - Therapy interrupted [Recovered/Resolved]
